FAERS Safety Report 9124603 (Version 1)
Quarter: 2013Q1

REPORT INFORMATION
  Report Type: Spontaneous
  Country: FR (occurrence: FR)
  Receive Date: 20130117
  Receipt Date: 20130117
  Transmission Date: 20140127
  Serious: Yes (Life-Threatening, Hospitalization)
  Sender: FDA-Public Use
  Company Number: FR-PFIZER INC-2013015650

PATIENT
  Age: 74 Year
  Sex: Male

DRUGS (3)
  1. VFEND [Suspect]
     Indication: APLASIA
     Dosage: 290 MG, 2X/DAY
     Route: 042
     Dates: start: 20121020, end: 20121103
  2. HERCEPTIN [Concomitant]
  3. CIFLOX [Concomitant]

REACTIONS (3)
  - Drug level increased [Recovered/Resolved]
  - Altered state of consciousness [Recovering/Resolving]
  - Encephalopathy [Unknown]
